FAERS Safety Report 9472463 (Version 2)
Quarter: 2013Q3

REPORT INFORMATION
  Report Type: Report from Study
  Country: TR (occurrence: TR)
  Receive Date: 20130823
  Receipt Date: 20130925
  Transmission Date: 20140515
  Serious: Yes (Disabling, Other)
  Sender: FDA-Public Use
  Company Number: PHHY2013TR089074

PATIENT
  Age: 50 Year
  Sex: Male
  Weight: 78 kg

DRUGS (3)
  1. EXJADE [Suspect]
     Indication: SERUM FERRITIN INCREASED
     Dosage: 2000 MG, DAILY
     Route: 048
     Dates: start: 201206
  2. MONTELUKAST [Concomitant]
     Dosage: 10 MG, (1X1)
  3. FOSTER                             /06206901/ [Concomitant]
     Dosage: 100MCG/6MCG (2X1)

REACTIONS (2)
  - Haematocrit decreased [Unknown]
  - Haemoglobin decreased [Unknown]
